FAERS Safety Report 11234828 (Version 1)
Quarter: 2015Q3

REPORT INFORMATION
  Report Type: Report from Study
  Country: GR (occurrence: GR)
  Receive Date: 20150702
  Receipt Date: 20150702
  Transmission Date: 20151125
  Serious: Yes (Hospitalization)
  Sender: FDA-Public Use
  Company Number: GR-SA-2015SA091325

PATIENT
  Age: 74 Year
  Sex: Male
  Weight: 78 kg

DRUGS (13)
  1. LYRICA [Concomitant]
     Active Substance: PREGABALIN
     Indication: PERIPHERAL SENSORY NEUROPATHY
     Route: 048
     Dates: start: 20150331
  2. DOCETAXEL. [Suspect]
     Active Substance: DOCETAXEL
     Indication: NON-SMALL CELL LUNG CANCER
     Route: 042
     Dates: start: 20150605, end: 20150605
  3. NIVESTIM [Concomitant]
     Active Substance: FILGRASTIM
     Indication: PROPHYLAXIS
     Dosage: DOSE:48 MILLIUNIT(S)
     Route: 058
     Dates: start: 20150606, end: 20150610
  4. ZESTRIL [Concomitant]
     Active Substance: LISINOPRIL
     Indication: HYPERTENSION
     Route: 048
     Dates: start: 20150226
  5. BLINDED THERAPY [Suspect]
     Active Substance: INVESTIGATIONAL PRODUCT
     Route: 042
     Dates: start: 20150605, end: 20150605
  6. MEDROL [Concomitant]
     Active Substance: METHYLPREDNISOLONE
     Indication: FACIAL PARESIS
     Route: 048
     Dates: start: 20150529, end: 20150530
  7. MEDROL [Concomitant]
     Active Substance: METHYLPREDNISOLONE
     Indication: ALLERGY PROPHYLAXIS
     Route: 048
     Dates: start: 20150529, end: 20150530
  8. MEDROL [Concomitant]
     Active Substance: METHYLPREDNISOLONE
     Indication: FACIAL PARESIS
     Route: 048
     Dates: start: 20150527, end: 20150528
  9. MEDROL [Concomitant]
     Active Substance: METHYLPREDNISOLONE
     Indication: ALLERGY PROPHYLAXIS
     Route: 048
     Dates: start: 20150527, end: 20150528
  10. MEDROL [Concomitant]
     Active Substance: METHYLPREDNISOLONE
     Indication: FACIAL PARESIS
     Route: 048
     Dates: start: 20150605, end: 20150608
  11. SOLIDON [Concomitant]
     Indication: DEPRESSION
     Route: 048
     Dates: start: 1996
  12. FENISTIL [Concomitant]
     Active Substance: DIMETHINDENE
     Indication: ALLERGY PROPHYLAXIS
     Route: 048
     Dates: start: 20150605, end: 20150608
  13. MEDROL [Concomitant]
     Active Substance: METHYLPREDNISOLONE
     Indication: ALLERGY PROPHYLAXIS
     Route: 048
     Dates: start: 20150605, end: 20150608

REACTIONS (1)
  - Gait disturbance [Not Recovered/Not Resolved]

NARRATIVE: CASE EVENT DATE: 20150612
